FAERS Safety Report 5973462-6 (Version None)
Quarter: 2008Q4

REPORT INFORMATION
  Report Type: 
  Country: None (occurrence: None)
  Receive Date: 20081201
  Receipt Date: 20080116
  Transmission Date: 20090506
  Serious: No
  Sender: FDA-Public Use
  Company Number: US-AMGEN-KDL260926

PATIENT
  Sex: Female

DRUGS (2)
  1. ENBREL [Suspect]
     Indication: RHEUMATOID ARTHRITIS
     Route: 058
     Dates: start: 20060311
  2. PLAQUENIL [Concomitant]
     Dates: start: 20071101

REACTIONS (3)
  - CONTUSION [None]
  - DIZZINESS [None]
  - SKIN LACERATION [None]
